FAERS Safety Report 6639092-8 (Version None)
Quarter: 2010Q1

REPORT INFORMATION
  Report Type: 
  Country: None (occurrence: None)
  Receive Date: 20100312
  Receipt Date: 20100226
  Transmission Date: 20100710
  Serious: Yes (Life-Threatening, Hospitalization)
  Sender: FDA-Public Use
  Company Number: 000#5#2006-00032

PATIENT
  Sex: Female
  Weight: 78 kg

DRUGS (21)
  1. LACOSAMIDE [Suspect]
     Indication: EPILEPSY
     Dosage: SEE IMAGE
     Route: 042
     Dates: start: 20050721, end: 20060430
  2. LACOSAMIDE [Suspect]
     Indication: EPILEPSY
     Dosage: SEE IMAGE
     Route: 042
     Dates: start: 20060430, end: 20060430
  3. LACOSAMIDE [Suspect]
     Indication: EPILEPSY
     Dosage: SEE IMAGE
     Route: 042
  4. LACOSAMIDE [Suspect]
     Indication: EPILEPSY
     Dosage: SEE IMAGE
     Route: 042
     Dates: start: 20050101
  5. GABAPENTIN [Suspect]
     Dosage: (56 G ORAL)
     Route: 048
     Dates: start: 20060430, end: 20060430
  6. TOPIRAMATE [Suspect]
     Dosage: (2 G ORAL)
     Route: 048
     Dates: start: 20060430, end: 20060430
  7. ZONISAMIDE [Suspect]
     Dosage: (2.8 G ORAL)
     Route: 048
     Dates: start: 20060430, end: 20060430
  8. NEURONTIN [Concomitant]
  9. TOPAMAX [Concomitant]
  10. LEVOTHYROXINE SODIUM [Concomitant]
  11. FOLSAN [Concomitant]
  12. PARACETAMOL [Concomitant]
  13. TITRALGAN /00309401/) [Concomitant]
  14. METAMIZOLE SODIUM [Concomitant]
  15. ECURAL [Concomitant]
  16. ACETYLCYSTEINE [Concomitant]
  17. CLINDAMYCIN [Concomitant]
  18. TRAPANAL [Concomitant]
  19. TRACRIUM [Concomitant]
  20. SUCCINYLCHLOLINE CHLORIDE [Concomitant]
  21. ZONISAMIDE [Concomitant]

REACTIONS (23)
  - ACIDOSIS [None]
  - AFFECT LABILITY [None]
  - AREFLEXIA [None]
  - ATRIOVENTRICULAR BLOCK FIRST DEGREE [None]
  - BLOOD POTASSIUM DECREASED [None]
  - BLOOD PRESSURE DECREASED [None]
  - COMA [None]
  - CONVULSION [None]
  - ELECTROCARDIOGRAM PR PROLONGATION [None]
  - ENCEPHALOPATHY [None]
  - GRAND MAL CONVULSION [None]
  - HYPOACUSIS [None]
  - INCORRECT DOSE ADMINISTERED [None]
  - NASAL SEPTUM DEVIATION [None]
  - OXYGEN SATURATION DECREASED [None]
  - PERSONALITY DISORDER [None]
  - PNEUMONIA ASPIRATION [None]
  - PYREXIA [None]
  - SUICIDAL IDEATION [None]
  - SUICIDE ATTEMPT [None]
  - THERAPEUTIC AGENT TOXICITY [None]
  - VOMITING [None]
  - WHITE BLOOD CELL COUNT INCREASED [None]
